FAERS Safety Report 9681437 (Version 1)
Quarter: 2013Q4

REPORT INFORMATION
  Report Type: Spontaneous
  Country: US (occurrence: US)
  Receive Date: 20131111
  Receipt Date: 20131111
  Transmission Date: 20140711
  Serious: No
  Sender: FDA-Public Use
  Company Number: US-BAYER-2013-135916

PATIENT
  Age: 82 Year
  Sex: Female

DRUGS (4)
  1. ALEVE CAPLET [Suspect]
     Dosage: 1 DF, PRN
     Route: 048
  2. OXYCODONE [Concomitant]
  3. FLUOXETINE [Concomitant]
  4. CLONAZEPAM [Concomitant]

REACTIONS (3)
  - Nervousness [Recovered/Resolved]
  - Restlessness [Recovered/Resolved]
  - Formication [Recovered/Resolved]
